FAERS Safety Report 7303025-1 (Version None)
Quarter: 2011Q1

REPORT INFORMATION
  Report Type: 
  Country: None (occurrence: None)
  Receive Date: 20110221
  Receipt Date: 20110214
  Transmission Date: 20110831
  Serious: Yes (Hospitalization)
  Sender: FDA-Public Use
  Company Number: US-BIOGENIDEC-2011BI004801

PATIENT
  Age: 51 Year
  Sex: Female

DRUGS (1)
  1. TYSABRI [Suspect]
     Indication: MULTIPLE SCLEROSIS
     Route: 042
     Dates: start: 20090813, end: 20100414

REACTIONS (7)
  - PAIN [None]
  - CONVULSION [None]
  - DEPRESSION [None]
  - THYROID FUNCTION TEST ABNORMAL [None]
  - CEREBRAL HAEMORRHAGE [None]
  - MYOCARDIAL INFARCTION [None]
  - SECONDARY PROGRESSIVE MULTIPLE SCLEROSIS [None]
